FAERS Safety Report 18020997 (Version 1)
Quarter: 2020Q3

REPORT INFORMATION
  Report Type: Spontaneous
  Country: US (occurrence: US)
  Receive Date: 20200714
  Receipt Date: 20200714
  Transmission Date: 20201103
  Serious: Yes (Hospitalization, Other)
  Sender: FDA-Public Use
  Company Number: US-ASTRAZENECA-2020SE86146

PATIENT
  Age: 21946 Day
  Sex: Male
  Weight: 106.6 kg

DRUGS (1)
  1. BYDUREON [Suspect]
     Active Substance: EXENATIDE
     Indication: DIABETES MELLITUS
     Dosage: 2 MG, ONCE A WEEK, ON MONDAYS
     Route: 065
     Dates: start: 2019, end: 2019

REACTIONS (5)
  - Prostate cancer [Recovered/Resolved]
  - Weight increased [Unknown]
  - Cholelithiasis [Unknown]
  - Pancreatitis [Unknown]
  - Biliary colic [Unknown]

NARRATIVE: CASE EVENT DATE: 2019
